FAERS Safety Report 10551418 (Version 1)
Quarter: 2014Q4

REPORT INFORMATION
  Report Type: Spontaneous
  Country: US (occurrence: US)
  Receive Date: 20141029
  Receipt Date: 20141029
  Transmission Date: 20150529
  Serious: No
  Sender: FDA-Public Use
  Company Number: US-JNJFOC-20141012487

PATIENT
  Sex: Female
  Weight: 63.5 kg

DRUGS (2)
  1. DURAGESIC [Suspect]
     Active Substance: FENTANYL
     Indication: PAIN
     Dosage: STARTED 4 YEARS AGO
     Route: 062
  2. DURAGESIC [Suspect]
     Active Substance: FENTANYL
     Indication: PAIN
     Route: 062

REACTIONS (6)
  - Therapeutic response decreased [Unknown]
  - Wrong technique in drug usage process [Unknown]
  - Product adhesion issue [Unknown]
  - Drug dose omission [Unknown]
  - Adverse event [Unknown]
  - Drug withdrawal syndrome [Recovered/Resolved]
